FAERS Safety Report 11217335 (Version 1)
Quarter: 2015Q2

REPORT INFORMATION
  Report Type: Spontaneous
  Country: GR (occurrence: GR)
  Receive Date: 20150625
  Receipt Date: 20150625
  Transmission Date: 20150821
  Serious: Yes (Other)
  Sender: FDA-Public Use
  Company Number: GR-ROCHE-1598590

PATIENT
  Age: 26 Year
  Sex: Male

DRUGS (1)
  1. ERIVEDGE [Suspect]
     Active Substance: VISMODEGIB
     Indication: MYELOBLASTOMA
     Route: 065

REACTIONS (3)
  - Platelet count decreased [Not Recovered/Not Resolved]
  - Off label use [Unknown]
  - Haematocrit decreased [Recovered/Resolved]
